FAERS Safety Report 12394457 (Version 1)
Quarter: 2016Q2

REPORT INFORMATION
  Report Type: Spontaneous
  Country: AU (occurrence: AU)
  Receive Date: 20160523
  Receipt Date: 20160523
  Transmission Date: 20160815
  Serious: Yes (Death)
  Sender: FDA-Public Use
  Company Number: AU-GILEAD-2016-0214758

PATIENT
  Age: 42 Year
  Sex: Male
  Weight: 126 kg

DRUGS (1)
  1. HARVONI [Suspect]
     Active Substance: LEDIPASVIR\SOFOSBUVIR
     Indication: HEPATITIS C
     Dosage: UNK
     Route: 048
     Dates: start: 20160317

REACTIONS (3)
  - Insomnia [Unknown]
  - Fatigue [Unknown]
  - Accidental overdose [Fatal]

NARRATIVE: CASE EVENT DATE: 20160420
